FAERS Safety Report 6445892-X (Version None)
Quarter: 2009Q4

REPORT INFORMATION
  Report Type: 
  Country: None (occurrence: None)
  Receive Date: 20091119
  Receipt Date: 20081007
  Transmission Date: 20100525
  Serious: No
  Sender: FDA-Public Use
  Company Number: A0750958A

PATIENT
  Sex: Female

DRUGS (1)
  1. BUPROPION HYDROCHLORIDE [Suspect]
     Indication: DEPRESSION
     Dosage: 150MG PER DAY
     Route: 048
     Dates: end: 20081004

REACTIONS (1)
  - ALOPECIA [None]
